FAERS Safety Report 9648224 (Version 1)
Quarter: 2013Q4

REPORT INFORMATION
  Report Type: Spontaneous
  Country: US (occurrence: US)
  Receive Date: 20131028
  Receipt Date: 20131028
  Transmission Date: 20140711
  Serious: Yes (Other)
  Sender: FDA-Public Use
  Company Number: US-AMGEN-USASP2013075369

PATIENT
  Age: 62 Year
  Sex: Female
  Weight: 87.53 kg

DRUGS (4)
  1. ENBREL [Suspect]
     Indication: PRODUCT USED FOR UNKNOWN INDICATION
     Dosage: 50 MG, QWK
     Route: 058
  2. ACIPHEX [Concomitant]
     Dosage: 20 MG, UNK
  3. CLARITIN                           /00413701/ [Concomitant]
     Dosage: 10 MG, UNK
  4. CARVEDILOL [Concomitant]
     Dosage: 3.125 MG, UNK

REACTIONS (1)
  - Gastric polyps [Unknown]
